FAERS Safety Report 19138823 (Version 1)
Quarter: 2021Q2

REPORT INFORMATION
  Report Type: Report from Study
  Country: JP (occurrence: JP)
  Receive Date: 20210415
  Receipt Date: 20210415
  Transmission Date: 20210717
  Serious: Yes (Other)
  Sender: FDA-Public Use
  Company Number: JP-AUROBINDO-AUR-APL-2021-015447

PATIENT
  Age: 73 Year
  Sex: Male
  Weight: 68.1 kg

DRUGS (6)
  1. FOLOTYN [Suspect]
     Active Substance: PRALATREXATE
     Dosage: 15 MILLIGRAM/SQ. METER, DAILY
     Route: 042
     Dates: start: 20201104
  2. FOLOTYN [Suspect]
     Active Substance: PRALATREXATE
     Dosage: 15 MILLIGRAM/SQ. METER, DAILY
     Route: 042
     Dates: start: 20201117, end: 20201124
  3. FOLIC ACID. [Concomitant]
     Active Substance: FOLIC ACID
     Indication: PRODUCT USED FOR UNKNOWN INDICATION
     Dosage: UNK
     Route: 065
     Dates: end: 20201222
  4. FOLOTYN [Suspect]
     Active Substance: PRALATREXATE
     Indication: PERIPHERAL T-CELL LYMPHOMA UNSPECIFIED
     Dosage: 15 MILLIGRAM/SQ. METER, DAILY
     Route: 042
     Dates: start: 20201027
  5. FOLOTYN [Suspect]
     Active Substance: PRALATREXATE
     Dosage: 15 MILLIGRAM/SQ. METER, DAILY
     Route: 042
     Dates: start: 20201111
  6. VITAMIN B12 [Concomitant]
     Active Substance: CYANOCOBALAMIN
     Indication: PRODUCT USED FOR UNKNOWN INDICATION
     Dosage: UNK
     Route: 065
     Dates: end: 20201020

REACTIONS (2)
  - Skin disorder [Recovering/Resolving]
  - Pyrexia [Recovered/Resolved]

NARRATIVE: CASE EVENT DATE: 20201029
